FAERS Safety Report 7777492-3 (Version None)
Quarter: 2011Q3

REPORT INFORMATION
  Report Type: 
  Country: None (occurrence: None)
  Receive Date: 20110926
  Receipt Date: 20110913
  Transmission Date: 20111222
  Serious: Yes (Hospitalization)
  Sender: FDA-Public Use
  Company Number: US-ELI_LILLY_AND_COMPANY-US201006004317

PATIENT
  Sex: Male

DRUGS (14)
  1. BUMETANIDE [Concomitant]
  2. METOPROLOL TARTRATE [Concomitant]
  3. OSCAL [Concomitant]
  4. DOXYCYCLA [Concomitant]
  5. FORTEO [Suspect]
     Indication: OSTEOPOROSIS
     Dosage: 20 UG, DAILY (1/D)
     Route: 065
  6. FORTEO [Suspect]
     Dosage: 20 UG, QD
  7. TORSEMIDE [Concomitant]
  8. MULTIVITAMIN [Concomitant]
  9. SPIRONOLACTONE [Concomitant]
  10. ALBUTEROL [Concomitant]
  11. FORADIL [Concomitant]
  12. PRAVASTATIN [Concomitant]
  13. PREDNISONE [Concomitant]
  14. OXYGEN [Concomitant]

REACTIONS (3)
  - CELLULITIS [None]
  - OEDEMA PERIPHERAL [None]
  - DIABETES MELLITUS [None]
